FAERS Safety Report 19671053 (Version 14)
Quarter: 2025Q2

REPORT INFORMATION
  Report Type: Report from Study
  Country: CA (occurrence: CA)
  Receive Date: 20210806
  Receipt Date: 20250506
  Transmission Date: 20250716
  Serious: No
  Sender: TAKEDA
  Company Number: CA-TAKEDA-2020TUS018753

PATIENT
  Age: 76 Year
  Sex: Male

DRUGS (31)
  1. VEDOLIZUMAB [Suspect]
     Active Substance: VEDOLIZUMAB
     Indication: Crohn^s disease
  2. VEDOLIZUMAB [Suspect]
     Active Substance: VEDOLIZUMAB
  3. VEDOLIZUMAB [Suspect]
     Active Substance: VEDOLIZUMAB
  4. VEDOLIZUMAB [Suspect]
     Active Substance: VEDOLIZUMAB
  5. VEDOLIZUMAB [Suspect]
     Active Substance: VEDOLIZUMAB
  6. VEDOLIZUMAB [Suspect]
     Active Substance: VEDOLIZUMAB
  7. VEDOLIZUMAB [Suspect]
     Active Substance: VEDOLIZUMAB
  8. VEDOLIZUMAB [Suspect]
     Active Substance: VEDOLIZUMAB
  9. VEDOLIZUMAB [Suspect]
     Active Substance: VEDOLIZUMAB
  10. VEDOLIZUMAB [Suspect]
     Active Substance: VEDOLIZUMAB
  11. VEDOLIZUMAB [Suspect]
     Active Substance: VEDOLIZUMAB
  12. VEDOLIZUMAB [Suspect]
     Active Substance: VEDOLIZUMAB
  13. VEDOLIZUMAB [Suspect]
     Active Substance: VEDOLIZUMAB
  14. VEDOLIZUMAB [Suspect]
     Active Substance: VEDOLIZUMAB
  15. VEDOLIZUMAB [Suspect]
     Active Substance: VEDOLIZUMAB
  16. VEDOLIZUMAB [Suspect]
     Active Substance: VEDOLIZUMAB
  17. VEDOLIZUMAB [Suspect]
     Active Substance: VEDOLIZUMAB
  18. PENTASA [Concomitant]
     Active Substance: MESALAMINE
  19. QUESTRAN [Concomitant]
     Active Substance: CHOLESTYRAMINE
  20. TAMSULOSIN [Concomitant]
     Active Substance: TAMSULOSIN
  21. PANTOPRAZOLE [Concomitant]
     Active Substance: PANTOPRAZOLE
  22. PANTOPRAZOLE [Concomitant]
     Active Substance: PANTOPRAZOLE
  23. ZOPICLONE [Concomitant]
     Active Substance: ZOPICLONE
  24. CHOLESTYRAMINE [Concomitant]
     Active Substance: CHOLESTYRAMINE
  25. PERINDOPRIL [Concomitant]
     Active Substance: PERINDOPRIL
  26. SLOW K [Concomitant]
     Active Substance: POTASSIUM CHLORIDE
  27. XARELTO [Concomitant]
     Active Substance: RIVAROXABAN
  28. FUROSEMIDE [Concomitant]
     Active Substance: FUROSEMIDE
  29. AMLODIPINE [Concomitant]
     Active Substance: AMLODIPINE BESYLATE
  30. RIVAROXABAN [Concomitant]
     Active Substance: RIVAROXABAN
  31. VITAMIN B12 [Concomitant]
     Active Substance: CYANOCOBALAMIN
     Dosage: UNK UNK, MONTHLY

REACTIONS (2)
  - Heart rate decreased [Unknown]
  - Blood pressure increased [Unknown]

NARRATIVE: CASE EVENT DATE: 20200415
